FAERS Safety Report 5705059-7 (Version None)
Quarter: 2008Q2

REPORT INFORMATION
  Report Type: 
  Country: None (occurrence: None)
  Receive Date: 20080409
  Receipt Date: 20080401
  Transmission Date: 20081010
  Serious: Yes (Hospitalization)
  Sender: FDA-Public Use
  Company Number: 163-21880-08040122

PATIENT
  Age: 61 Year
  Sex: Male

DRUGS (26)
  1. REVLIMID [Suspect]
     Indication: MYELODYSPLASTIC SYNDROME
     Dosage: 10 MG, DAILY, ORAL
     Route: 048
     Dates: end: 20080328
  2. NACL 0.8% (SODIUM CHLORIDE) [Concomitant]
  3. MULTIVITAMIN [Concomitant]
  4. ASCORBIC ACID [Concomitant]
  5. LEXAPRO [Concomitant]
  6. ACETAMINOPHEN [Concomitant]
  7. BENADRYL [Concomitant]
  8. FLUCONAZOLE [Concomitant]
  9. LIDOCAINE VISCOUS (LIDOCAINE HYDROCHLORIDE) [Concomitant]
  10. LORATADINE [Concomitant]
  11. MAGNESIUM/ALUM HYDROXIDE (MAGNESIUM HYDROXIDE) [Concomitant]
  12. MORPHINE SULFATE [Concomitant]
  13. MOXIFLOXACIN HCL (MOXIFLOXACIN HYDROCHLORIDE) [Concomitant]
  14. OXYMETAZOLINE (OXYMETAZOLINE) [Concomitant]
  15. SODIUM BICARBONATE IN PLASTIC CONTAINER [Concomitant]
  16. SUCRALFATE [Concomitant]
  17. ZOLPIDEM [Concomitant]
  18. 0.9 % SODIUM CHLORIDE (SODIUM CHLORIDE) [Concomitant]
  19. NEULASTA [Concomitant]
  20. COMPAZINE [Concomitant]
  21. ZOFRAN [Concomitant]
  22. MIRILAX OTC (MACROGOL) [Concomitant]
  23. AVELOX [Concomitant]
  24. CODEINE/GUAIFENESIN (CHERACOL) [Concomitant]
  25. THORAZINE [Concomitant]
  26. CLARITIN [Concomitant]

REACTIONS (8)
  - ATELECTASIS [None]
  - CONSTIPATION [None]
  - DYSPHAGIA [None]
  - EPISTAXIS [None]
  - LOCAL SWELLING [None]
  - MUCOSAL INFLAMMATION [None]
  - PANCYTOPENIA [None]
  - THROAT TIGHTNESS [None]
